FAERS Safety Report 8420156-3 (Version None)
Quarter: 2012Q2

REPORT INFORMATION
  Report Type: 
  Country: None (occurrence: None)
  Receive Date: 20120607
  Receipt Date: 20100813
  Transmission Date: 20120825
  Serious: Yes (Other)
  Sender: FDA-Public Use
  Company Number: JP-BRISTOL-MYERS SQUIBB COMPANY-15247224

PATIENT
  Age: 86 Year
  Sex: Male

DRUGS (11)
  1. CASANTHRANOL + DSS [Concomitant]
  2. SULBACTAM [Suspect]
     Route: 042
     Dates: start: 20100723, end: 20100731
  3. CEFAZOLIN SODIUM [Concomitant]
  4. LEVOFLOXACIN [Suspect]
     Route: 048
     Dates: start: 20100723, end: 20100728
  5. ZOLPIDEM [Concomitant]
  6. CARBIDOPA AND LEVODOPA [Concomitant]
  7. ISOSORBIDE DINITRATE [Concomitant]
     Dosage: FRANDOL S
  8. BROMOCRIPTINE MESYLATE [Concomitant]
  9. ABILIFY [Suspect]
     Indication: SCHIZOPHRENIA
     Dosage: 3MG: 12JUL2010-25JUL2010(14D) 6MG: 26JUL2010-03AUG2010(9D)
     Route: 048
     Dates: start: 20100712, end: 20100803
  10. REBAMIPIDE [Concomitant]
  11. FLUVOXAMINE MALEATE [Concomitant]

REACTIONS (4)
  - PNEUMONIA [None]
  - PYREXIA [None]
  - ALANINE AMINOTRANSFERASE INCREASED [None]
  - ASPARTATE AMINOTRANSFERASE INCREASED [None]
